FAERS Safety Report 26109604 (Version 1)
Quarter: 2025Q4

REPORT INFORMATION
  Report Type: Spontaneous
  Country: EU (occurrence: EU)
  Receive Date: 20251201
  Receipt Date: 20251201
  Transmission Date: 20260117
  Serious: Yes (Other)
  Sender: MYLAN
  Company Number: None

PATIENT
  Age: 43 Year
  Sex: Female
  Weight: 94 kg

DRUGS (4)
  1. SERTRALINE [Suspect]
     Active Substance: SERTRALINE HYDROCHLORIDE
     Indication: Depression
     Dosage: 100 MILLIGRAM, QD (1 PER DAY)
     Dates: start: 20250902, end: 20251031
  2. SERTRALINE [Suspect]
     Active Substance: SERTRALINE HYDROCHLORIDE
     Dosage: 100 MILLIGRAM, QD (1 PER DAY)
     Route: 048
     Dates: start: 20250902, end: 20251031
  3. SERTRALINE [Suspect]
     Active Substance: SERTRALINE HYDROCHLORIDE
     Dosage: 100 MILLIGRAM, QD (1 PER DAY)
     Route: 048
     Dates: start: 20250902, end: 20251031
  4. SERTRALINE [Suspect]
     Active Substance: SERTRALINE HYDROCHLORIDE
     Dosage: 100 MILLIGRAM, QD (1 PER DAY)
     Dates: start: 20250902, end: 20251031

REACTIONS (6)
  - Suicidal ideation [Unknown]
  - Dysphagia [Recovering/Resolving]
  - Oesophageal spasm [Recovering/Resolving]
  - Pain [Recovering/Resolving]
  - Hyperhidrosis [Recovering/Resolving]
  - Rash pruritic [Recovering/Resolving]
